FAERS Safety Report 26155341 (Version 1)
Quarter: 2025Q4

REPORT INFORMATION
  Report Type: Spontaneous
  Country: EU (occurrence: EU)
  Receive Date: 20251215
  Receipt Date: 20251215
  Transmission Date: 20260118
  Serious: Yes (Other)
  Sender: ROCHE
  Company Number: EU-ROCHE-10000452377

PATIENT
  Age: 12 Year
  Sex: Male

DRUGS (2)
  1. EVRYSDI [Suspect]
     Active Substance: RISDIPLAM
     Indication: Spinal muscular atrophy
     Dosage: TAKING THE ^VERSION^ OF THE PRODUCT THAT WAS ON THE MARKET
  2. EVRYSDI [Suspect]
     Active Substance: RISDIPLAM
     Dosage: CLINICAL TRIALS FROM 2018 UNTIL 2023

REACTIONS (4)
  - Weight increased [Unknown]
  - Defaecation disorder [Unknown]
  - Skin lesion [Recovered/Resolved]
  - Cutaneous vasculitis [Unknown]

NARRATIVE: CASE EVENT DATE: 20231001
